FAERS Safety Report 25832293 (Version 3)
Quarter: 2025Q4

REPORT INFORMATION
  Report Type: Report from Study
  Country: CA (occurrence: None)
  Receive Date: 20250922
  Receipt Date: 20251027
  Transmission Date: 20260119
  Serious: Yes (Other)
  Sender: UCB
  Company Number: CA-UCBSA-2025058180

PATIENT
  Age: 60 Year

DRUGS (2)
  1. CERTOLIZUMAB PEGOL [Suspect]
     Active Substance: CERTOLIZUMAB PEGOL
     Indication: Ankylosing spondylitis
     Dosage: 200 MILLIGRAM, EV 2 WEEKS(QOW)
  2. PREDNISONE [Concomitant]
     Active Substance: PREDNISONE
     Indication: Corneal transplant
     Dosage: UNK

REACTIONS (4)
  - Ankylosing spondylitis [Unknown]
  - Hernia repair [Recovering/Resolving]
  - Hernia [Recovering/Resolving]
  - Intentional dose omission [Unknown]
